FAERS Safety Report 23631849 (Version 2)
Quarter: 2024Q1

REPORT INFORMATION
  Report Type: Spontaneous
  Country: GB (occurrence: GB)
  Receive Date: 20240314
  Receipt Date: 20240329
  Transmission Date: 20240410
  Serious: Yes (Death)
  Sender: FDA-Public Use
  Company Number: GB-MHRA-MED-202402281723287980-QDNLC

PATIENT
  Age: 77 Year
  Sex: Male

DRUGS (1)
  1. PEGASYS [Suspect]
     Active Substance: PEGINTERFERON ALFA-2A
     Indication: Product used for unknown indication

REACTIONS (1)
  - Death [Fatal]
